FAERS Safety Report 5114474-4 (Version None)
Quarter: 2006Q3

REPORT INFORMATION
  Report Type: 
  Country: None (occurrence: None)
  Receive Date: 20060802
  Receipt Date: 20060530
  Transmission Date: 20061208
  Serious: Yes (Hospitalization)
  Sender: FDA-Public Use
  Company Number: 200611137US

PATIENT
  Age: 43 Year
  Sex: Female

DRUGS (7)
  1. KETEK [Suspect]
     Indication: UPPER RESPIRATORY TRACT INFECTION
     Dates: start: 20060123, end: 20060125
  2. TOPROL-XL [Suspect]
     Indication: HYPERTENSION
  3. LIPITOR [Concomitant]
  4. ADIPEX [Concomitant]
  5. CYCLOBENZAPRINE HYDROCHLORIDE (FLEXERIL) [Concomitant]
  6. IBUPROFEN [Concomitant]
  7. TOPROL-XL [Concomitant]

REACTIONS (3)
  - ANGIONEUROTIC OEDEMA [None]
  - LOCAL SWELLING [None]
  - NECK PAIN [None]
